FAERS Safety Report 9236556 (Version 3)
Quarter: 2013Q4

REPORT INFORMATION
  Report Type: Spontaneous
  Country: GB (occurrence: GB)
  Receive Date: 20130417
  Receipt Date: 20131025
  Transmission Date: 20140711
  Serious: Yes (Death)
  Sender: FDA-Public Use
  Company Number: GB-TEVA-397681ISR

PATIENT
  Age: 75 Year
  Sex: Male

DRUGS (3)
  1. SIMVASTATIN [Suspect]
     Indication: PRODUCT USED FOR UNKNOWN INDICATION
     Route: 065
     Dates: start: 20051108
  2. SIMVASTATIN [Suspect]
     Dosage: INCREASED TO 20 MG ON 17-SEP-2008
     Route: 065
     Dates: start: 20080917
  3. SIMVASTATIN [Suspect]
     Dosage: INCREASED TO 40 MG ON 10-NOV-2008
     Route: 065
     Dates: end: 20110728

REACTIONS (1)
  - Pulmonary fibrosis [Fatal]
